FAERS Safety Report 23343049 (Version 1)
Quarter: 2023Q4

REPORT INFORMATION
  Report Type: Report from Study
  Country: CN (occurrence: CN)
  Receive Date: 20231227
  Receipt Date: 20231227
  Transmission Date: 20240110
  Serious: Yes (Other)
  Sender: FDA-Public Use
  Company Number: CN-Merck Healthcare KGaA-2023495937

PATIENT
  Age: 45 Year
  Sex: Female

DRUGS (1)
  1. EUTHYROX [Suspect]
     Active Substance: LEVOTHYROXINE SODIUM
     Indication: Hypothyroidism
     Route: 048

REACTIONS (7)
  - Drug dependence [Unknown]
  - Asthenia [Unknown]
  - Weight increased [Unknown]
  - Renal disorder [Unknown]
  - Liver disorder [Unknown]
  - Emotional disorder [Unknown]
  - Alopecia [Unknown]
